FAERS Safety Report 13097681 (Version 1)
Quarter: 2017Q1

REPORT INFORMATION
  Report Type: Spontaneous
  Country: GB (occurrence: GB)
  Receive Date: 20170109
  Receipt Date: 20170109
  Transmission Date: 20170428
  Serious: Yes (Other)
  Sender: FDA-Public Use
  Company Number: GB-TEVA-726771ACC

PATIENT
  Age: 54 Year
  Sex: Female
  Weight: 72 kg

DRUGS (10)
  1. CLARITHROMYCIN. [Suspect]
     Active Substance: CLARITHROMYCIN
     Dates: start: 20161212
  2. CHLORPHENAMINE [Concomitant]
     Active Substance: CHLORPHENIRAMINE MALEATE
     Dosage: EVERY 4-6 HRS
     Dates: start: 20161216
  3. PREDNISOLONE. [Concomitant]
     Active Substance: PREDNISOLONE
     Dosage: 2 DOSAGE FORMS DAILY;
     Dates: start: 20161216
  4. BETAMETHASONE VALERATE. [Concomitant]
     Active Substance: BETAMETHASONE VALERATE
     Dosage: 2 DOSAGE FORMS DAILY;
     Route: 061
     Dates: start: 20151009
  5. LOPERAMIDE [Concomitant]
     Active Substance: LOPERAMIDE
     Dosage: USE UP TO TWO TABLET THREE TIMES A DAY
     Dates: start: 20151009
  6. ZERODERMA EMOLLIENT MEDICINAL BATH [Concomitant]
     Dosage: USE AS SOAP SUBSTITUTE
     Dates: start: 20160322
  7. CIPROFLOXACIN. [Concomitant]
     Active Substance: CIPROFLOXACIN
     Dosage: 2 DOSAGE FORMS DAILY;
     Dates: start: 20151009
  8. SALBUTAMOL [Concomitant]
     Active Substance: ALBUTEROL
     Dosage: ONE - TWO PUFFS FOUR TIMES A DAY.
     Dates: start: 20151009
  9. CLENIL MODULITE [Concomitant]
     Active Substance: BECLOMETHASONE DIPROPIONATE
     Dosage: 4 DOSAGE FORMS DAILY;
     Dates: start: 20151009
  10. CLOTRIMAZOLE. [Concomitant]
     Active Substance: CLOTRIMAZOLE
     Dosage: USE AS DIRECTED
     Dates: start: 20161216, end: 20161217

REACTIONS (1)
  - Lip oedema [Recovered/Resolved]

NARRATIVE: CASE EVENT DATE: 20161212
